FAERS Safety Report 24319770 (Version 1)
Quarter: 2024Q3

REPORT INFORMATION
  Report Type: Spontaneous
  Country: US (occurrence: US)
  Receive Date: 20240914
  Receipt Date: 20240914
  Transmission Date: 20241016
  Serious: Yes (Hospitalization, Other)
  Sender: ABBVIE
  Company Number: US-ABBVIE-5919954

PATIENT
  Age: 57 Year
  Sex: Male
  Weight: 113 kg

DRUGS (2)
  1. HUMIRA [Suspect]
     Active Substance: ADALIMUMAB
     Indication: Psoriatic arthropathy
     Route: 058
     Dates: start: 2000
  2. HUMIRA [Suspect]
     Active Substance: ADALIMUMAB
     Indication: Psoriasis

REACTIONS (6)
  - Lung neoplasm malignant [Unknown]
  - Pneumothorax [Recovered/Resolved]
  - Swollen tongue [Recovered/Resolved]
  - Anal cancer [Unknown]
  - Pulmonary mass [Recovered/Resolved]
  - Hypersensitivity [Unknown]

NARRATIVE: CASE EVENT DATE: 20211101
